FAERS Safety Report 19938629 (Version 1)
Quarter: 2021Q4

REPORT INFORMATION
  Report Type: Spontaneous
  Country: US (occurrence: US)
  Receive Date: 20211011
  Receipt Date: 20211011
  Transmission Date: 20220303
  Serious: No
  Sender: FDA-Public Use
  Company Number: 2021A734581

PATIENT
  Age: 871 Month
  Sex: Female
  Weight: 53.1 kg

DRUGS (2)
  1. PULMICORT FLEXHALER [Suspect]
     Active Substance: BUDESONIDE
     Indication: COVID-19
     Route: 055
     Dates: start: 20210815, end: 202108
  2. ERYTHROMYCIN [Concomitant]
     Active Substance: ERYTHROMYCIN
     Route: 048
     Dates: start: 20210815

REACTIONS (5)
  - COVID-19 [Not Recovered/Not Resolved]
  - Ageusia [Unknown]
  - Device malfunction [Unknown]
  - Device use issue [Recovering/Resolving]
  - Drug ineffective [Recovering/Resolving]

NARRATIVE: CASE EVENT DATE: 20210801
